FAERS Safety Report 5966225-9 (Version None)
Quarter: 2008Q4

REPORT INFORMATION
  Report Type: 
  Country: None (occurrence: None)
  Receive Date: 20081125
  Receipt Date: 20081117
  Transmission Date: 20090506
  Serious: Yes (Hospitalization)
  Sender: FDA-Public Use
  Company Number: AU-JNJFOC-20081104269

PATIENT
  Age: 25 Year
  Sex: Female

DRUGS (4)
  1. TOPAMAX [Suspect]
     Indication: MIGRAINE PROPHYLAXIS
     Route: 048
  2. EFFEXOR [Suspect]
     Indication: FATIGUE
     Route: 048
  3. EFFEXOR [Suspect]
     Indication: ASTHENIA
     Route: 048
  4. YASMIN [Concomitant]
     Indication: CONTRACEPTION
     Route: 048

REACTIONS (6)
  - CONSCIOUSNESS FLUCTUATING [None]
  - CONVULSION [None]
  - EPILEPSY [None]
  - EYE ROLLING [None]
  - HALLUCINATION [None]
  - MUSCLE SPASMS [None]
